FAERS Safety Report 21667573 (Version 4)
Quarter: 2024Q4

REPORT INFORMATION
  Report Type: Spontaneous
  Country: US (occurrence: US)
  Receive Date: 20221201
  Receipt Date: 20241014
  Transmission Date: 20250115
  Serious: Yes (Other)
  Sender: PFIZER
  Company Number: US-PFIZER INC-PV202200112905

PATIENT
  Age: 64 Year
  Sex: Male

DRUGS (4)
  1. CIBINQO [Suspect]
     Active Substance: ABROCITINIB
     Indication: Dermatitis atopic
     Dosage: 100 MG, 1X/DAY
     Route: 048
  2. CIBINQO [Suspect]
     Active Substance: ABROCITINIB
     Indication: Psoriasis
  3. CIBINQO [Suspect]
     Active Substance: ABROCITINIB
     Indication: Eczema
  4. CIBINQO [Suspect]
     Active Substance: ABROCITINIB
     Indication: Folliculitis

REACTIONS (2)
  - Atrial fibrillation [Unknown]
  - Hypertension [Unknown]
